FAERS Safety Report 19774157 (Version 1)
Quarter: 2021Q3

REPORT INFORMATION
  Report Type: Other
  Country: FR (occurrence: FR)
  Receive Date: 20210901
  Receipt Date: 20210901
  Transmission Date: 20211014
  Serious: Yes (Death)
  Sender: FDA-Public Use
  Company Number: FR-ROCHE-1476906

PATIENT
  Sex: Male
  Weight: 66 kg

DRUGS (4)
  1. VINCRISTINE [Concomitant]
     Active Substance: VINCRISTINE
     Dosage: DOSE: 1.5 MG/SEM
     Route: 065
     Dates: start: 20130528
  2. RITUXIMAB. [Suspect]
     Active Substance: RITUXIMAB
     Indication: IMMUNE THROMBOCYTOPENIA
     Dosage: DATE OF LAST DOSE  PRIOR TO THE EVENT : 27/JUN/2012
     Route: 042
     Dates: start: 20120612
  3. RITUXIMAB. [Suspect]
     Active Substance: RITUXIMAB
     Dosage: DOSE: 2 X 1000 MG; DATE OF LAST DOSE  PRIOR TO THE EVENT : 27/JUN/2012
     Route: 042
     Dates: start: 20120612
  4. ROMIPLOSTIM [Concomitant]
     Active Substance: ROMIPLOSTIM
     Dosage: DOSE 500 MICROGR/SEM
     Route: 065
     Dates: start: 20130528

REACTIONS (3)
  - Off label use [Unknown]
  - Product use in unapproved indication [Unknown]
  - Pneumonia bacterial [Fatal]

NARRATIVE: CASE EVENT DATE: 2013
